FAERS Safety Report 24444299 (Version 2)
Quarter: 2024Q4

REPORT INFORMATION
  Report Type: Report from Study
  Country: US (occurrence: US)
  Receive Date: 20241016
  Receipt Date: 20241017
  Transmission Date: 20250115
  Serious: No
  Sender: ROCHE
  Company Number: US-ROCHE-2721174

PATIENT
  Age: 75 Year
  Sex: Male

DRUGS (3)
  1. RITUXAN [Suspect]
     Active Substance: RITUXIMAB
     Indication: Myasthenia gravis
     Dosage: 2500 MG VIAL, DATE OF TREATMENT: 10/JUN/2021, ANTICIPATED DATE OF TREATMENT: 09/DEC/2021
     Route: 041
  2. PREDNISONE [Concomitant]
     Active Substance: PREDNISONE
  3. LOSARTAN [Concomitant]
     Active Substance: LOSARTAN

REACTIONS (2)
  - Off label use [Unknown]
  - No adverse event [Unknown]
